FAERS Safety Report 13959566 (Version 1)
Quarter: 2017Q3

REPORT INFORMATION
  Report Type: Spontaneous
  Country: US (occurrence: None)
  Receive Date: 20170912
  Receipt Date: 20170912
  Transmission Date: 20171128
  Serious: Yes (Hospitalization)
  Sender: FDA-Public Use
  Company Number: None

PATIENT
  Age: 52 Year
  Sex: Male
  Weight: 139.8 kg

DRUGS (1)
  1. CYTARABINE. [Suspect]
     Active Substance: CYTARABINE
     Dates: end: 20170209

REACTIONS (10)
  - Pyrexia [None]
  - Hypotension [None]
  - Tachycardia [None]
  - Cardiomegaly [None]
  - Infection [None]
  - Asthenia [None]
  - Cough [None]
  - Generalised oedema [None]
  - Chest X-ray abnormal [None]
  - Dyspnoea [None]

NARRATIVE: CASE EVENT DATE: 20170210
